FAERS Safety Report 16666158 (Version 1)
Quarter: 2019Q3

REPORT INFORMATION
  Report Type: Report from Study
  Country: None (occurrence: BR)
  Receive Date: 20190805
  Receipt Date: 20190805
  Transmission Date: 20191004
  Serious: Yes (Other)
  Sender: FDA-Public Use
  Company Number: BR-ABBVIE-19K-020-2874200-00

PATIENT
  Age: 64 Year
  Sex: Female
  Weight: 61 kg

DRUGS (6)
  1. HUMIRA [Suspect]
     Active Substance: ADALIMUMAB
     Indication: RHEUMATOID ARTHRITIS
     Route: 058
     Dates: start: 20050109, end: 201902
  2. PREDNISONE. [Concomitant]
     Active Substance: PREDNISONE
     Indication: PRODUCT USED FOR UNKNOWN INDICATION
     Route: 048
  3. HUMIRA [Suspect]
     Active Substance: ADALIMUMAB
     Route: 058
  4. PARACETAMOL [Suspect]
     Active Substance: ACETAMINOPHEN
     Indication: PRODUCT USED FOR UNKNOWN INDICATION
     Route: 065
  5. METHOTREXATE. [Concomitant]
     Active Substance: METHOTREXATE
     Indication: PRODUCT USED FOR UNKNOWN INDICATION
     Route: 048
  6. PREGABALIN. [Concomitant]
     Active Substance: PREGABALIN
     Indication: PRODUCT USED FOR UNKNOWN INDICATION
     Route: 048

REACTIONS (15)
  - Limb deformity [Recovered/Resolved]
  - Bone disorder [Unknown]
  - Spinal fracture [Unknown]
  - Knee deformity [Recovered/Resolved]
  - Osteosclerosis [Unknown]
  - Tibia fracture [Recovered/Resolved]
  - Malaise [Recovered/Resolved]
  - Pain [Recovering/Resolving]
  - Osteoarthritis [Unknown]
  - Weight decreased [Unknown]
  - Depression [Unknown]
  - Spinal pain [Recovering/Resolving]
  - Rheumatoid arthritis [Recovering/Resolving]
  - Vascular calcification [Unknown]
  - Osteoporosis [Unknown]

NARRATIVE: CASE EVENT DATE: 201902
